FAERS Safety Report 6389491-7 (Version None)
Quarter: 2009Q4

REPORT INFORMATION
  Report Type: 
  Country: None (occurrence: None)
  Receive Date: 20091006
  Receipt Date: 20090924
  Transmission Date: 20100525
  Serious: Yes (Other)
  Sender: FDA-Public Use
  Company Number: US-ASTRAZENECA-2009SE15745

PATIENT
  Age: 17 Year
  Sex: Female

DRUGS (2)
  1. SEROQUEL XR [Suspect]
     Indication: BIPOLAR DISORDER
     Route: 048
     Dates: start: 20090922
  2. ALLERGY MEDS [Suspect]

REACTIONS (3)
  - LOSS OF CONSCIOUSNESS [None]
  - SEDATION [None]
  - TACHYARRHYTHMIA [None]
